FAERS Safety Report 5614038-X (Version None)
Quarter: 2008Q1

REPORT INFORMATION
  Report Type: 
  Country: None (occurrence: None)
  Receive Date: 20080205
  Receipt Date: 20080131
  Transmission Date: 20080703
  Serious: Yes (Other)
  Sender: FDA-Public Use
  Company Number: BR-ROCHE-544834

PATIENT
  Age: 20 Year
  Sex: Female

DRUGS (3)
  1. ROACCUTANE [Suspect]
     Indication: DRUG USE FOR UNKNOWN INDICATION
     Dosage: STRENGTH: 10-20 MG
     Route: 048
     Dates: start: 20070601
  2. 1 CONCOMITANT DRUG [Concomitant]
     Dosage: DRUG NAME: EFFACLAR
     Route: 061
  3. 1 CONCOMITANT DRUG [Concomitant]
     Route: 061

REACTIONS (2)
  - NO ADVERSE EVENT [None]
  - PREGNANCY [None]
